FAERS Safety Report 7713792-0 (Version None)
Quarter: 2011Q3

REPORT INFORMATION
  Report Type: 
  Country: None (occurrence: None)
  Receive Date: 20110826
  Receipt Date: 20110824
  Transmission Date: 20111222
  Serious: No
  Sender: FDA-Public Use
  Company Number: US-PFIZER INC-2011196871

PATIENT
  Sex: Male
  Weight: 84.807 kg

DRUGS (2)
  1. ADVIL PM [Suspect]
     Indication: SLEEP DISORDER
     Dosage: UNK
  2. KLONOPIN [Concomitant]
     Indication: NERVOUS SYSTEM DISORDER
     Dosage: 2 MG, 2X/DAY

REACTIONS (2)
  - AMNESIA [None]
  - PROSTATOMEGALY [None]
